FAERS Safety Report 15262636 (Version 1)
Quarter: 2018Q3

REPORT INFORMATION
  Report Type: Spontaneous
  Country: US (occurrence: US)
  Receive Date: 20180720
  Receipt Date: 20180720
  Transmission Date: 20181010
  Serious: Yes (Other)
  Sender: FDA-Public Use
  Company Number: None

PATIENT
  Age: 43 Year
  Sex: Female
  Weight: 63 kg

DRUGS (1)
  1. ZO BRIGHTENEX [Suspect]
     Active Substance: RETINOL
     Indication: CHEMICAL PEEL OF SKIN
     Dosage: ?          QUANTITY:1 TUBE;?
     Route: 061

REACTIONS (1)
  - Skin hyperpigmentation [None]

NARRATIVE: CASE EVENT DATE: 20180620
